FAERS Safety Report 8257773-X (Version None)
Quarter: 2012Q2

REPORT INFORMATION
  Report Type: 
  Country: None (occurrence: None)
  Receive Date: 20120404
  Receipt Date: 20120326
  Transmission Date: 20120825
  Serious: No
  Sender: FDA-Public Use
  Company Number: US-BIOGENIDEC-2011BI040646

PATIENT
  Sex: Female

DRUGS (4)
  1. TYSABRI [Suspect]
     Route: 042
     Dates: start: 20101122
  2. TYSABRI [Suspect]
     Indication: MULTIPLE SCLEROSIS
     Route: 042
     Dates: start: 20080404, end: 20080819
  3. SOLU-MEDROL [Concomitant]
     Indication: PREMEDICATION
     Dates: start: 20111101
  4. TYSABRI [Suspect]
     Route: 042
     Dates: start: 20090127, end: 20100125

REACTIONS (14)
  - AGITATION [None]
  - ADVERSE REACTION [None]
  - MOUTH ULCERATION [None]
  - STOMATITIS [None]
  - BLOOD PRESSURE INCREASED [None]
  - ANXIETY [None]
  - SENSATION OF HEAVINESS [None]
  - HEADACHE [None]
  - MUSCLE SPASMS [None]
  - HEART RATE INCREASED [None]
  - DIZZINESS [None]
  - FEELING ABNORMAL [None]
  - NAUSEA [None]
  - FATIGUE [None]
